FAERS Safety Report 16113442 (Version 2)
Quarter: 2019Q4

REPORT INFORMATION
  Report Type: Spontaneous
  Country: US (occurrence: US)
  Receive Date: 20190325
  Receipt Date: 20191011
  Transmission Date: 20200122
  Serious: No
  Sender: FDA-Public Use
  Company Number: US-PFIZER INC-2019122923

PATIENT
  Age: 46 Year
  Sex: Female

DRUGS (1)
  1. AMPICILLIN SODIUM. [Suspect]
     Active Substance: AMPICILLIN SODIUM
     Dosage: UNK

REACTIONS (1)
  - Drug hypersensitivity [Unknown]

NARRATIVE: CASE EVENT DATE: 20070321
